FAERS Safety Report 17300138 (Version 1)
Quarter: 2020Q1

REPORT INFORMATION
  Report Type: Spontaneous
  Country: DE (occurrence: DE)
  Receive Date: 20200122
  Receipt Date: 20200122
  Transmission Date: 20200409
  Serious: Yes (Other)
  Sender: FDA-Public Use
  Company Number: DE-PFIZER INC-2019494924

PATIENT
  Sex: Female

DRUGS (2)
  1. METHOTREXATE SODIUM. [Suspect]
     Active Substance: METHOTREXATE SODIUM
     Indication: PSORIATIC ARTHROPATHY
     Dosage: UNK
  2. ORENCIA [Suspect]
     Active Substance: ABATACEPT
     Indication: PSORIATIC ARTHROPATHY
     Dosage: UNK

REACTIONS (8)
  - Aggression [Unknown]
  - Influenza like illness [Unknown]
  - Crying [Unknown]
  - Alopecia [Not Recovered/Not Resolved]
  - Weight increased [Unknown]
  - Drug ineffective [Unknown]
  - Depression [Recovered/Resolved]
  - Suicidal ideation [Unknown]
